FAERS Safety Report 6580733-1 (Version None)
Quarter: 2010Q1

REPORT INFORMATION
  Report Type: 
  Country: None (occurrence: None)
  Receive Date: 20100212
  Receipt Date: 20100203
  Transmission Date: 20100710
  Serious: Yes (Hospitalization, Other)
  Sender: FDA-Public Use
  Company Number: CA-JNJFOC-20100202811

PATIENT
  Sex: Female

DRUGS (6)
  1. REMICADE [Suspect]
     Indication: DRUG EXPOSURE DURING PREGNANCY
     Route: 042
  2. FISH OIL [Concomitant]
     Indication: DRUG EXPOSURE DURING PREGNANCY
  3. FLAX SEED OIL [Concomitant]
     Indication: DRUG EXPOSURE DURING PREGNANCY
  4. CALCIUM [Concomitant]
     Indication: DRUG EXPOSURE DURING PREGNANCY
  5. CELEXA [Concomitant]
     Indication: DRUG EXPOSURE DURING PREGNANCY
  6. MULTIPLE VITAMINS [Concomitant]
     Indication: DRUG EXPOSURE DURING PREGNANCY

REACTIONS (5)
  - CARDIOMEGALY [None]
  - CONGENITAL TRICUSPID VALVE INCOMPETENCE [None]
  - MATERNAL DRUGS AFFECTING FOETUS [None]
  - PULMONARY VALVE STENOSIS CONGENITAL [None]
  - TACHYCARDIA FOETAL [None]
